FAERS Safety Report 5042693-4 (Version None)
Quarter: 2006Q3

REPORT INFORMATION
  Report Type: 
  Country: None (occurrence: None)
  Receive Date: 20060705
  Receipt Date: 20060605
  Transmission Date: 20061208
  Serious: Yes (Other)
  Sender: FDA-Public Use
  Company Number: 2006AP02551

PATIENT
  Age: 73 Year
  Sex: Female
  Weight: 50 kg

DRUGS (22)
  1. MEROPEN [Suspect]
     Indication: EXTRADURAL ABSCESS
     Route: 041
     Dates: start: 20060126, end: 20060216
  2. MEROPEN [Suspect]
     Dosage: ONLY ON HAEMODIALYSIS DAYS THREE TIMES A WEEK
     Route: 041
     Dates: start: 20060224, end: 20060228
  3. MEROPEN [Suspect]
     Route: 041
     Dates: start: 20060301, end: 20060309
  4. MEROPEN [Suspect]
     Route: 041
     Dates: start: 20060310, end: 20060316
  5. MEROPEN [Suspect]
     Dosage: FOUR TIMES A WEEK ON NON-HAEMODIALYSIS DAYS
     Route: 041
     Dates: start: 20060317, end: 20060327
  6. MEROPEN [Suspect]
     Dosage: HAEMODIALYSIS DAYS
     Route: 041
     Dates: start: 20060317, end: 20060327
  7. MEROPEN [Suspect]
     Route: 041
     Dates: start: 20060328, end: 20060416
  8. MEROPEN [Suspect]
     Route: 041
     Dates: start: 20060417, end: 20060515
  9. TIENAM [Concomitant]
     Indication: EXTRADURAL ABSCESS
     Dates: start: 20060124, end: 20060125
  10. FUNGARD [Concomitant]
     Indication: CANDIDIASIS
     Route: 041
     Dates: start: 20060301, end: 20060410
  11. NOVOLIN R INJECTION [Concomitant]
     Indication: HYPERGLYCAEMIA
     Route: 058
     Dates: start: 20060124, end: 20060508
  12. MAGLAX [Concomitant]
     Indication: CONSTIPATION
     Route: 048
     Dates: start: 20060124, end: 20060308
  13. MUCOSTA [Concomitant]
     Indication: GASTRITIS
     Route: 048
     Dates: start: 20060124, end: 20060410
  14. CALTAN [Concomitant]
     Indication: HYPERPHOSPHATAEMIA
     Route: 048
     Dates: start: 20060124, end: 20060410
  15. LIPITOR [Concomitant]
     Indication: HYPERLIPIDAEMIA
     Route: 048
     Dates: start: 20060124, end: 20060410
  16. NU-LOTAN [Concomitant]
     Indication: HYPERTENSION
     Route: 048
     Dates: start: 20060124, end: 20060410
  17. RENIVACE [Concomitant]
     Indication: HYPERTENSION
     Route: 048
     Dates: start: 20060124, end: 20060410
  18. HALCION [Concomitant]
     Indication: INSOMNIA
     Route: 048
     Dates: start: 20060124, end: 20060410
  19. SEVOFRANE [Concomitant]
     Indication: ANAESTHESIA
     Route: 055
  20. THIOPENTAL SODIUM [Concomitant]
     Indication: ANAESTHESIA
  21. FENTANEST [Concomitant]
     Indication: ANAESTHESIA
  22. MUSCULAX [Concomitant]
     Indication: ANAESTHESIA
     Route: 042

REACTIONS (9)
  - AFFECT LABILITY [None]
  - BACK PAIN [None]
  - BLOOD BETA-D-GLUCAN INCREASED [None]
  - DIVERTICULUM INTESTINAL HAEMORRHAGIC [None]
  - EATING DISORDER [None]
  - GENERAL PHYSICAL HEALTH DETERIORATION [None]
  - HYPERTENSION [None]
  - PSYCHIATRIC SYMPTOM [None]
  - REFUSAL OF TREATMENT BY PATIENT [None]
